FAERS Safety Report 7295923-2 (Version None)
Quarter: 2011Q1

REPORT INFORMATION
  Report Type: 
  Country: None (occurrence: None)
  Receive Date: 20110216
  Receipt Date: 20110207
  Transmission Date: 20110831
  Serious: Yes (Hospitalization)
  Sender: FDA-Public Use
  Company Number: FR-AMGEN INC.-KDC438551

PATIENT
  Age: 73 Year
  Sex: Male

DRUGS (4)
  1. LEUPRORELIN [Concomitant]
     Dosage: 11.25 MG, UNK
     Route: 058
     Dates: start: 20100903
  2. DENOSUMAB [Suspect]
     Indication: METASTASES TO BONE
     Dosage: 1.7 ML, QMO
     Route: 058
     Dates: start: 20100323
  3. DARBEPOETIN ALFA [Suspect]
     Dosage: 500 A?G, UNK
     Route: 058
     Dates: start: 20100903, end: 20100903
  4. ACETYLSALICYLATE LYSINE [Concomitant]
     Dosage: 160 MG, QD
     Route: 048
     Dates: start: 20100823, end: 20100905

REACTIONS (2)
  - HAEMATURIA [None]
  - ANAEMIA [None]
